FAERS Safety Report 6941254-7 (Version None)
Quarter: 2010Q3

REPORT INFORMATION
  Report Type: 
  Country: None (occurrence: None)
  Receive Date: 20100825
  Receipt Date: 20100722
  Transmission Date: 20110219
  Serious: No
  Sender: FDA-Public Use
  Company Number: US-BRISTOL-MYERS SQUIBB COMPANY-15205222

PATIENT
  Age: 67 Year
  Sex: Male

DRUGS (5)
  1. ONGLYZA [Suspect]
     Dosage: ALSO TAKEN AS CONMED
     Dates: start: 20100611
  2. ENALAPRIL [Concomitant]
  3. NORVASC [Concomitant]
  4. COZAAR [Concomitant]
  5. LEVOCARNITINE [Concomitant]

REACTIONS (1)
  - URINARY TRACT INFECTION [None]
